FAERS Safety Report 13932365 (Version 1)
Quarter: 2017Q3

REPORT INFORMATION
  Report Type: Report from Study
  Country: FR (occurrence: FR)
  Receive Date: 20170904
  Receipt Date: 20170904
  Transmission Date: 20171127
  Serious: Yes (Death)
  Sender: FDA-Public Use
  Company Number: FR-JNJFOC-20170825369

PATIENT
  Age: 82 Year
  Sex: Female

DRUGS (1)
  1. XARELTO [Suspect]
     Active Substance: RIVAROXABAN
     Indication: ATRIAL FIBRILLATION
     Route: 048
     Dates: start: 20150509, end: 20160510

REACTIONS (4)
  - Bladder disorder [Fatal]
  - Uterine cancer [Fatal]
  - Tumour invasion [Fatal]
  - Haematuria [Fatal]

NARRATIVE: CASE EVENT DATE: 20160706
